FAERS Safety Report 7912289-2 (Version None)
Quarter: 2011Q4

REPORT INFORMATION
  Report Type: 
  Country: None (occurrence: None)
  Receive Date: 20111114
  Receipt Date: 20111104
  Transmission Date: 20120403
  Serious: Yes (Hospitalization)
  Sender: FDA-Public Use
  Company Number: US-BAYER-2011-019375

PATIENT
  Age: 40 Year
  Sex: Female
  Weight: 96.145 kg

DRUGS (7)
  1. PREDNISONE [Concomitant]
  2. YAZ [Suspect]
     Indication: CONTRACEPTION
     Dosage: UNK
     Route: 048
     Dates: start: 20080401, end: 20081117
  3. PROTONIX [Concomitant]
  4. AUGMENTIN [Concomitant]
  5. AMOXICILLIN [Concomitant]
     Dosage: UNK
     Dates: start: 20081101
  6. IBUPROFEN [Concomitant]
     Dosage: UNK
     Dates: start: 20010801
  7. YAZ [Suspect]
     Indication: ACNE

REACTIONS (9)
  - PULMONARY EMBOLISM [None]
  - EMOTIONAL DISTRESS [None]
  - VENTRICULAR HYPOKINESIA [None]
  - ANXIETY [None]
  - RIGHT VENTRICULAR FAILURE [None]
  - DILATATION VENTRICULAR [None]
  - DEEP VEIN THROMBOSIS [None]
  - PAIN [None]
  - PULMONARY INFARCTION [None]
